FAERS Safety Report 15565589 (Version 5)
Quarter: 2019Q1

REPORT INFORMATION
  Report Type: Report from Study
  Country: ES (occurrence: ES)
  Receive Date: 20181030
  Receipt Date: 20190314
  Transmission Date: 20190417
  Serious: Yes (Other)
  Sender: FDA-Public Use
  Company Number: ES-VELOXIS PHARMACEUTICALS, INC.-2017VELES0333

PATIENT
  Age: 58 Year
  Sex: Female
  Weight: 81 kg

DRUGS (10)
  1. ADOPORT [Concomitant]
     Active Substance: TACROLIMUS
     Dosage: 2 MG, BID
     Dates: start: 20170127, end: 20170127
  2. ENVARSUS XR [Suspect]
     Active Substance: TACROLIMUS
     Dosage: 2 MG, QD
     Route: 048
     Dates: start: 20170223, end: 20170223
  3. ENVARSUS XR [Suspect]
     Active Substance: TACROLIMUS
     Dosage: 5 MG, QD
     Route: 048
     Dates: start: 20170206, end: 20170208
  4. ENVARSUS XR [Suspect]
     Active Substance: TACROLIMUS
     Dosage: 2.75 MG, QD
     Route: 048
     Dates: start: 20170212, end: 20170216
  5. ENVARSUS XR [Suspect]
     Active Substance: TACROLIMUS
     Dosage: UNK
  6. TRAMADOL. [Concomitant]
     Active Substance: TRAMADOL
     Indication: PRODUCT USED FOR UNKNOWN INDICATION
  7. PARACETAMOL [Concomitant]
     Active Substance: ACETAMINOPHEN
     Indication: PRODUCT USED FOR UNKNOWN INDICATION
  8. ENVARSUS XR [Suspect]
     Active Substance: TACROLIMUS
     Dosage: 2 MG, QD
     Route: 048
     Dates: start: 20170225, end: 20170227
  9. ENVARSUS XR [Suspect]
     Active Substance: TACROLIMUS
     Indication: LIVER TRANSPLANT
     Dosage: 5 MG, QD
     Route: 048
     Dates: start: 20170128, end: 20170202
  10. ADOPORT [Concomitant]
     Active Substance: TACROLIMUS
     Indication: LIVER TRANSPLANT
     Dosage: 2 MG, QD, AFTERNOON
     Dates: start: 20170126, end: 20170126

REACTIONS (6)
  - Incorrect dose administered [Unknown]
  - Renal failure [Recovered/Resolved]
  - Hypertension [Not Recovered/Not Resolved]
  - Product prescribing error [Unknown]
  - Headache [Recovered/Resolved]
  - Immunosuppressant drug level increased [Recovered/Resolved]

NARRATIVE: CASE EVENT DATE: 20170131
